FAERS Safety Report 16580233 (Version 1)
Quarter: 2019Q3

REPORT INFORMATION
  Report Type: Spontaneous
  Country: PT (occurrence: PT)
  Receive Date: 20190716
  Receipt Date: 20190716
  Transmission Date: 20191004
  Serious: Yes (Other)
  Sender: FDA-Public Use
  Company Number: PT-TEVA-2019-PT-1077462

PATIENT
  Age: 41 Year
  Sex: Female

DRUGS (1)
  1. IBUPROFEN. [Suspect]
     Active Substance: IBUPROFEN
     Indication: ANALGESIC THERAPY
     Route: 048
     Dates: start: 201810

REACTIONS (3)
  - Laryngeal oedema [Recovered/Resolved]
  - Angioedema [Recovered/Resolved]
  - Urticaria [Recovered/Resolved]

NARRATIVE: CASE EVENT DATE: 201810
